FAERS Safety Report 9716614 (Version 1)
Quarter: 2013Q4

REPORT INFORMATION
  Report Type: Spontaneous
  Country: US (occurrence: None)
  Receive Date: 20131126
  Receipt Date: 20131126
  Transmission Date: 20140711
  Serious: Yes (Hospitalization)
  Sender: FDA-Public Use
  Company Number: None

PATIENT
  Age: 69 Year
  Sex: Male
  Weight: 102 kg

DRUGS (4)
  1. DABIGATRAN [Suspect]
     Indication: ATRIAL FIBRILLATION
     Route: 048
     Dates: start: 20130101, end: 20130930
  2. TOPROL XL [Concomitant]
  3. CARTIA [Concomitant]
  4. LIPITOR [Concomitant]

REACTIONS (3)
  - Large intestine polyp [None]
  - Haematochezia [None]
  - Gastrointestinal haemorrhage [None]
